FAERS Safety Report 16808943 (Version 1)
Quarter: 2019Q4

REPORT INFORMATION
  Report Type: Spontaneous
  Country: US (occurrence: US)
  Receive Date: 20190914
  Receipt Date: 20190914
  Transmission Date: 20200122
  Serious: Yes (Life-Threatening, Hospitalization)
  Sender: FDA-Public Use
  Company Number: None

PATIENT
  Age: 54 Year
  Sex: Female
  Weight: 108 kg

DRUGS (4)
  1. OTC PAIN MEDS [Concomitant]
  2. IBUPROFEN. [Suspect]
     Active Substance: IBUPROFEN
     Indication: HEADACHE
     Dosage: ?          QUANTITY:2 TABLET(S);?
     Route: 048
     Dates: start: 20190913, end: 20190913
  3. METAFORMIN [Concomitant]
  4. ESSENTIAL OILS. [Concomitant]
     Active Substance: ESSENTIAL OILS

REACTIONS (5)
  - Swollen tongue [None]
  - Hypersensitivity [None]
  - Pruritus [None]
  - Erythema [None]
  - Ear pruritus [None]

NARRATIVE: CASE EVENT DATE: 20190913
